FAERS Safety Report 11619742 (Version 2)
Quarter: 2016Q2

REPORT INFORMATION
  Report Type: Report from Study
  Country: DE (occurrence: DE)
  Receive Date: 20151012
  Receipt Date: 20160422
  Transmission Date: 20160815
  Serious: Yes (Hospitalization)
  Sender: FDA-Public Use
  Company Number: DE-ABBVIE-15K-062-1477361-00

PATIENT
  Age: 65 Year
  Sex: Female
  Weight: 80 kg

DRUGS (3)
  1. METHOTREXATE [Suspect]
     Active Substance: METHOTREXATE
     Indication: RHEUMATOID ARTHRITIS
     Route: 065
  2. HUMIRA [Suspect]
     Active Substance: ADALIMUMAB
     Indication: RHEUMATOID ARTHRITIS
     Route: 058
     Dates: end: 20140913
  3. HUMIRA [Suspect]
     Active Substance: ADALIMUMAB
     Route: 058
     Dates: start: 20141202

REACTIONS (8)
  - Cholelithiasis [Recovered/Resolved]
  - Cholecystitis [Recovered/Resolved]
  - Pancreatitis [Unknown]
  - Cholangitis [Recovered/Resolved]
  - Bile duct stone [Recovered/Resolved]
  - Nonspecific reaction [Unknown]
  - Post procedural complication [Unknown]
  - Cholecystitis infective [Recovered/Resolved]

NARRATIVE: CASE EVENT DATE: 201410
